FAERS Safety Report 14777558 (Version 1)
Quarter: 2018Q2

REPORT INFORMATION
  Report Type: Spontaneous
  Country: US (occurrence: US)
  Receive Date: 20180419
  Receipt Date: 20180419
  Transmission Date: 20180711
  Serious: No
  Sender: FDA-Public Use
  Company Number: US-PFIZER INC-2018157024

PATIENT

DRUGS (1)
  1. ADVIL PM [Suspect]
     Active Substance: DIPHENHYDRAMINE CITRATE\IBUPROFEN
     Dosage: TOOK 3 NOT 2

REACTIONS (5)
  - Poor quality sleep [Unknown]
  - Intentional product use issue [Unknown]
  - Poor quality drug administered [Unknown]
  - Pain [Unknown]
  - Product odour abnormal [Unknown]
